FAERS Safety Report 25010388 (Version 1)
Quarter: 2025Q1

REPORT INFORMATION
  Report Type: Spontaneous
  Country: IE (occurrence: IE)
  Receive Date: 20250225
  Receipt Date: 20250225
  Transmission Date: 20250409
  Serious: Yes (Congenital Anomaly)
  Sender: MYLAN
  Company Number: IE-UCBSA-2025007705

PATIENT

DRUGS (16)
  1. LEVETIRACETAM [Suspect]
     Active Substance: LEVETIRACETAM
     Indication: Epilepsy
  2. LEVETIRACETAM [Suspect]
     Active Substance: LEVETIRACETAM
  3. LEVETIRACETAM [Suspect]
     Active Substance: LEVETIRACETAM
     Route: 064
  4. LEVETIRACETAM [Suspect]
     Active Substance: LEVETIRACETAM
     Route: 064
  5. LEVETIRACETAM [Suspect]
     Active Substance: LEVETIRACETAM
  6. LEVETIRACETAM [Suspect]
     Active Substance: LEVETIRACETAM
  7. LEVETIRACETAM [Suspect]
     Active Substance: LEVETIRACETAM
     Route: 064
  8. LEVETIRACETAM [Suspect]
     Active Substance: LEVETIRACETAM
     Route: 064
  9. ESLICARBAZEPINE [Suspect]
     Active Substance: ESLICARBAZEPINE
     Indication: Epilepsy
  10. ESLICARBAZEPINE [Suspect]
     Active Substance: ESLICARBAZEPINE
  11. ESLICARBAZEPINE [Suspect]
     Active Substance: ESLICARBAZEPINE
     Route: 064
  12. ESLICARBAZEPINE [Suspect]
     Active Substance: ESLICARBAZEPINE
     Route: 064
  13. ESLICARBAZEPINE [Suspect]
     Active Substance: ESLICARBAZEPINE
  14. ESLICARBAZEPINE [Suspect]
     Active Substance: ESLICARBAZEPINE
  15. ESLICARBAZEPINE [Suspect]
     Active Substance: ESLICARBAZEPINE
     Route: 064
  16. ESLICARBAZEPINE [Suspect]
     Active Substance: ESLICARBAZEPINE
     Route: 064

REACTIONS (2)
  - Congenital anomaly [Unknown]
  - Foetal exposure during pregnancy [Unknown]
